FAERS Safety Report 8484136-4 (Version None)
Quarter: 2012Q3

REPORT INFORMATION
  Report Type: 
  Country: None (occurrence: None)
  Receive Date: 20120703
  Receipt Date: 20120625
  Transmission Date: 20120928
  Serious: Yes (Hospitalization)
  Sender: FDA-Public Use
  Company Number: US-BAYER-2012-063361

PATIENT
  Age: 36 Year
  Sex: Female
  Weight: 117 kg

DRUGS (2)
  1. YASMIN [Suspect]
  2. YAZ [Suspect]

REACTIONS (1)
  - RENAL VEIN THROMBOSIS [None]
